FAERS Safety Report 15734087 (Version 1)
Quarter: 2018Q4

REPORT INFORMATION
  Report Type: Report from Study
  Country: US (occurrence: US)
  Receive Date: 20181218
  Receipt Date: 20181218
  Transmission Date: 20190205
  Serious: No
  Sender: FDA-Public Use
  Company Number: US-IPSEN BIOPHARMACEUTICALS, INC.-2018-19014

PATIENT
  Age: 5 Year
  Sex: Male
  Weight: 14.7 kg

DRUGS (1)
  1. DYSPORT [Suspect]
     Active Substance: ABOBOTULINUMTOXINA
     Indication: MUSCLE SPASTICITY
     Dosage: 34 UNITS PER KILOGRAM ON BILATERAL LOWER EXTREMITIES.
     Dates: start: 20181016, end: 20181016

REACTIONS (2)
  - Overdose [Unknown]
  - Neuromuscular toxicity [Recovering/Resolving]

NARRATIVE: CASE EVENT DATE: 20181016
